FAERS Safety Report 12426911 (Version 2)
Quarter: 2016Q2

REPORT INFORMATION
  Report Type: Report from Study
  Country: AU (occurrence: AU)
  Receive Date: 20160601
  Receipt Date: 20160603
  Transmission Date: 20160815
  Serious: Yes (Hospitalization)
  Sender: FDA-Public Use
  Company Number: AU-ABBVIE-15P-008-1366248-00

PATIENT
  Age: 39 Year
  Sex: Female

DRUGS (72)
  1. CYMBALTA [Suspect]
     Active Substance: DULOXETINE HYDROCHLORIDE
     Indication: ANXIETY
     Route: 065
     Dates: start: 2012, end: 20150423
  2. VALACICLOVIR [Concomitant]
     Active Substance: VALACYCLOVIR HYDROCHLORIDE
     Indication: INFECTION PROPHYLAXIS
     Dates: start: 20140911, end: 20141217
  3. TEMAZEPAM. [Concomitant]
     Active Substance: TEMAZEPAM
     Dates: start: 20141124, end: 20141124
  4. PANADOL [Concomitant]
     Active Substance: ACETAMINOPHEN
     Indication: PROPHYLAXIS
     Dates: start: 20141010, end: 20141010
  5. PANADOL [Concomitant]
     Active Substance: ACETAMINOPHEN
     Dates: start: 20141023, end: 20141025
  6. HYDROCORTISONE. [Concomitant]
     Active Substance: HYDROCORTISONE
     Dates: start: 20141017, end: 20141017
  7. HYDROCORTISONE. [Concomitant]
     Active Substance: HYDROCORTISONE
     Dates: start: 20141028, end: 20141028
  8. DEXTROSE. [Concomitant]
     Active Substance: DEXTROSE
     Indication: TUMOUR LYSIS SYNDROME
     Dates: start: 20141013, end: 20141013
  9. PANADEINE FORTE [Concomitant]
     Active Substance: ACETAMINOPHEN\CODEINE PHOSPHATE
     Indication: BONE PAIN
     Dates: start: 20141025, end: 20141114
  10. CYCLOPHOSPHAMIDE. [Suspect]
     Active Substance: CYCLOPHOSPHAMIDE
     Indication: NON-HODGKIN^S LYMPHOMA
     Dosage: MOST RECENT DOSE PRIOR TO AE: 21/NOV/2014 AT 14.50
     Route: 065
     Dates: start: 20141010
  11. PREDNISONE. [Suspect]
     Active Substance: PREDNISONE
     Indication: NON-HODGKIN^S LYMPHOMA
     Dosage: MOST RECENT DOSE PRIOR TO AE: 23/NOV/2014
     Route: 048
     Dates: start: 20141010
  12. TARGIN [Concomitant]
     Active Substance: NALOXONE HYDROCHLORIDE\OXYCODONE HYDROCHLORIDE
     Indication: POST LUMBAR PUNCTURE SYNDROME
     Dates: start: 20150115, end: 20150116
  13. NORMAL SALINE [Concomitant]
     Active Substance: SODIUM CHLORIDE
     Indication: DRUG-INDUCED LIVER INJURY
     Dates: start: 20150505, end: 20150510
  14. ALLOPURINOL. [Concomitant]
     Active Substance: ALLOPURINOL
     Indication: TUMOUR LYSIS SYNDROME
     Dates: start: 20141007, end: 20141127
  15. CETIRIZINE [Concomitant]
     Active Substance: CETIRIZINE HYDROCHLORIDE
     Dates: start: 20141031, end: 20141031
  16. HYDROCORTISONE. [Concomitant]
     Active Substance: HYDROCORTISONE
     Indication: PROPHYLAXIS
     Dates: start: 20141010, end: 20141010
  17. PEGFILGRASTIM [Concomitant]
     Active Substance: PEGFILGRASTIM
     Dates: start: 20141124, end: 20141124
  18. AUGMENTIN DUO [Concomitant]
     Active Substance: AMOXICILLIN\CLAVULANATE POTASSIUM
     Indication: FEBRILE NEUTROPENIA
     Dates: start: 20141025, end: 20141103
  19. AUGMENTIN DUO [Concomitant]
     Active Substance: AMOXICILLIN\CLAVULANATE POTASSIUM
     Indication: UPPER RESPIRATORY TRACT INFECTION
     Dates: start: 20141231, end: 20150105
  20. ENDONE [Concomitant]
     Active Substance: OXYCODONE HYDROCHLORIDE
     Indication: HEADACHE
     Dates: start: 20141110, end: 20141110
  21. VALACICLOVIR [Concomitant]
     Active Substance: VALACYCLOVIR HYDROCHLORIDE
     Indication: TINNITUS
     Dates: start: 20150108
  22. NORMAL SALINE [Concomitant]
     Active Substance: SODIUM CHLORIDE
     Indication: PROPHYLAXIS
     Dates: start: 20141123, end: 20141125
  23. PANADOL [Concomitant]
     Active Substance: ACETAMINOPHEN
     Dates: start: 20141028, end: 20141028
  24. PANADOL [Concomitant]
     Active Substance: ACETAMINOPHEN
     Dates: start: 20141121, end: 20141121
  25. CETIRIZINE [Concomitant]
     Active Substance: CETIRIZINE HYDROCHLORIDE
     Dates: start: 20141028, end: 20141028
  26. ONDANSETRON [Concomitant]
     Active Substance: ONDANSETRON
     Indication: PROPHYLAXIS OF NAUSEA AND VOMITING
     Dates: start: 20141010, end: 20141012
  27. FILGRASTIM [Concomitant]
     Active Substance: FILGRASTIM
     Indication: FEBRILE NEUTROPENIA
     Dates: start: 20141023, end: 20141023
  28. FILGRASTIM [Concomitant]
     Active Substance: FILGRASTIM
     Dates: start: 20141025, end: 20141025
  29. TEMAZEPAM. [Concomitant]
     Active Substance: TEMAZEPAM
     Dates: start: 20141130, end: 20141130
  30. NORMAL SALINE [Concomitant]
     Active Substance: SODIUM CHLORIDE
     Indication: PYREXIA
     Dates: start: 20141013, end: 20141013
  31. NORMAL SALINE [Concomitant]
     Active Substance: SODIUM CHLORIDE
     Indication: TUMOUR LYSIS SYNDROME
     Dates: start: 20141126, end: 20141128
  32. CETIRIZINE [Concomitant]
     Active Substance: CETIRIZINE HYDROCHLORIDE
     Indication: PROPHYLAXIS
     Dates: start: 20141010, end: 20141010
  33. GLYCERIN. [Concomitant]
     Active Substance: GLYCERIN
     Indication: CONSTIPATION
     Dates: start: 20141017, end: 20141017
  34. PANTOPRAZOLE [Concomitant]
     Active Substance: PANTOPRAZOLE SODIUM
     Indication: DYSPEPSIA
     Dates: start: 20141013, end: 20141217
  35. ZOFRAN [Concomitant]
     Active Substance: ONDANSETRON HYDROCHLORIDE
     Indication: PROPHYLAXIS OF NAUSEA AND VOMITING
     Dates: start: 20141031, end: 20141031
  36. TAZOCIN [Concomitant]
     Active Substance: PIPERACILLIN SODIUM\TAZOBACTAM SODIUM
     Indication: FEBRILE NEUTROPENIA
     Dates: start: 20141022, end: 20141025
  37. TAZOCIN [Concomitant]
     Active Substance: PIPERACILLIN SODIUM\TAZOBACTAM SODIUM
     Indication: PYREXIA
     Dates: start: 20141123, end: 20141124
  38. SLOW K [Concomitant]
     Active Substance: POTASSIUM CHLORIDE
     Indication: PROPHYLAXIS
  39. SULFAMETHOXAZOLE AND TRIMETHOPRIM [Concomitant]
     Active Substance: SULFAMETHOXAZOLE\TRIMETHOPRIM
     Indication: PNEUMOCYSTIS JIROVECII PNEUMONIA
     Dates: start: 20150525, end: 20150615
  40. VENETOCLAX [Suspect]
     Active Substance: VENETOCLAX
     Indication: NON-HODGKIN^S LYMPHOMA
     Dosage: MOST RECENT DOSE PRIOR TO AE: 10/DEC/2014
     Route: 048
     Dates: start: 20141013
  41. DOXORUBICIN [Suspect]
     Active Substance: DOXORUBICIN
     Indication: NON-HODGKIN^S LYMPHOMA
     Dosage: MOST RECENT DOSE PRIOR TO AE: 21/NOV/2014 AT 14.20
     Route: 065
     Dates: start: 20141010
  42. LORAZEPAM. [Concomitant]
     Active Substance: LORAZEPAM
     Indication: ANXIETY
     Dates: start: 201504, end: 201511
  43. PANADOL [Concomitant]
     Active Substance: ACETAMINOPHEN
     Indication: PYREXIA
     Dates: start: 20141017, end: 20141017
  44. PANADOL [Concomitant]
     Active Substance: ACETAMINOPHEN
     Dates: start: 20141123, end: 20141124
  45. CETIRIZINE [Concomitant]
     Active Substance: CETIRIZINE HYDROCHLORIDE
     Dates: start: 20141121, end: 20141121
  46. COLOXYL WITH SENNA [Concomitant]
     Active Substance: DOCUSATE\SENNOSIDES
     Indication: PRODUCT USED FOR UNKNOWN INDICATION
  47. ENOXAPARIN [Concomitant]
     Active Substance: ENOXAPARIN
     Indication: THROMBOSIS PROPHYLAXIS
     Dates: start: 20141124, end: 20141124
  48. NORMAL SALINE [Concomitant]
     Active Substance: SODIUM CHLORIDE
     Indication: POST LUMBAR PUNCTURE SYNDROME
     Dates: start: 20150113, end: 20150114
  49. MAXOLON [Concomitant]
     Active Substance: METOCLOPRAMIDE HYDROCHLORIDE
     Dates: start: 20141023, end: 20141023
  50. DEXTROSE. [Concomitant]
     Active Substance: DEXTROSE
     Indication: PROPHYLAXIS
  51. SLOW K [Concomitant]
     Active Substance: POTASSIUM CHLORIDE
     Indication: HYPOKALAEMIA
     Dates: start: 20141025, end: 20141025
  52. VINCRISTINE [Suspect]
     Active Substance: VINCRISTINE
     Indication: NON-HODGKIN^S LYMPHOMA
     Dosage: MOST RECENT DOSE PRIOR TO AE: 21/NOV/2014 AT 14.35
     Route: 065
     Dates: start: 20141010
  53. SULFAMETHOXAZOLE AND TRIMETHOPRIM [Suspect]
     Active Substance: SULFAMETHOXAZOLE\TRIMETHOPRIM
     Indication: PRODUCT USED FOR UNKNOWN INDICATION
     Route: 065
     Dates: start: 20140911, end: 20141217
  54. TEMAZEPAM. [Concomitant]
     Active Substance: TEMAZEPAM
     Indication: INSOMNIA
     Dates: start: 20150114, end: 20150114
  55. LORAZEPAM. [Concomitant]
     Active Substance: LORAZEPAM
     Dates: start: 20141125, end: 20141125
  56. PANADOL [Concomitant]
     Active Substance: ACETAMINOPHEN
     Dates: start: 20141031, end: 20141031
  57. MAXOLON [Concomitant]
     Active Substance: METOCLOPRAMIDE HYDROCHLORIDE
     Dates: start: 20141121, end: 20141121
  58. ENDONE [Concomitant]
     Active Substance: OXYCODONE HYDROCHLORIDE
     Indication: HEADACHE
     Dates: start: 20141126, end: 20141126
  59. RULIDE [Concomitant]
     Active Substance: ROXITHROMYCIN
     Indication: UPPER RESPIRATORY TRACT INFECTION
     Dates: start: 20141231, end: 20150105
  60. GA101 [Suspect]
     Active Substance: OBINUTUZUMAB
     Indication: NON-HODGKIN^S LYMPHOMA
     Dosage: MOST RECENT DOSE PRIOR TO AE: 21/NOV/2014 AT 10.05
     Route: 065
     Dates: start: 20141010
  61. ALLOPURINOL. [Concomitant]
     Active Substance: ALLOPURINOL
     Indication: PROPHYLAXIS
  62. PANADOL [Concomitant]
     Active Substance: ACETAMINOPHEN
     Dates: start: 20141126, end: 20141130
  63. CETIRIZINE [Concomitant]
     Active Substance: CETIRIZINE HYDROCHLORIDE
     Dates: start: 20141017, end: 20141017
  64. HYDROCORTISONE. [Concomitant]
     Active Substance: HYDROCORTISONE
     Dates: start: 20141031, end: 20141031
  65. HYDROCORTISONE. [Concomitant]
     Active Substance: HYDROCORTISONE
     Dates: start: 20141121, end: 20141121
  66. MAXOLON [Concomitant]
     Active Substance: METOCLOPRAMIDE HYDROCHLORIDE
     Indication: PROPHYLAXIS OF NAUSEA AND VOMITING
     Dates: start: 20141010, end: 20141217
  67. MAXOLON [Concomitant]
     Active Substance: METOCLOPRAMIDE HYDROCHLORIDE
     Indication: NAUSEA
     Dates: start: 20141031, end: 20141031
  68. MICROLAX [Concomitant]
     Indication: CONSTIPATION
     Dates: start: 20141017, end: 20141017
  69. ZOFRAN [Concomitant]
     Active Substance: ONDANSETRON HYDROCHLORIDE
     Dates: start: 20141121, end: 20141122
  70. PEGFILGRASTIM [Concomitant]
     Active Substance: PEGFILGRASTIM
     Indication: PROPHYLAXIS
     Dates: start: 20141103, end: 20141103
  71. TAZOCIN [Concomitant]
     Active Substance: PIPERACILLIN SODIUM\TAZOBACTAM SODIUM
     Dates: start: 20141126, end: 20141129
  72. LACTULOSE. [Concomitant]
     Active Substance: LACTULOSE
     Indication: CONSTIPATION
     Dates: start: 20141024, end: 20141024

REACTIONS (1)
  - Drug-induced liver injury [Recovered/Resolved]

NARRATIVE: CASE EVENT DATE: 20150206
